FAERS Safety Report 8271969-2 (Version None)
Quarter: 2012Q2

REPORT INFORMATION
  Report Type: 
  Country: None (occurrence: None)
  Receive Date: 20120410
  Receipt Date: 20120404
  Transmission Date: 20120825
  Serious: Yes (Life-Threatening, Hospitalization, Other)
  Sender: FDA-Public Use
  Company Number: US-SHIONOGI, INC-2012000133

PATIENT
  Age: 8 Year
  Sex: Female

DRUGS (3)
  1. RISPERIDONE [Concomitant]
     Dosage: 1 MG, BID
  2. ADDERALL 5 [Concomitant]
     Dosage: 50 MG, QD
  3. CLONIDINE [Suspect]
     Dosage: 0.4 MG, EVERY NIGHT

REACTIONS (2)
  - MALIGNANT HYPERTENSION [None]
  - CONVULSION [None]
